FAERS Safety Report 9394655 (Version 2)
Quarter: 2013Q4

REPORT INFORMATION
  Report Type: Spontaneous
  Country: US (occurrence: US)
  Receive Date: 20130711
  Receipt Date: 20131105
  Transmission Date: 20140711
  Serious: Yes (Hospitalization, Other)
  Sender: FDA-Public Use
  Company Number: US-BAYER-2013-082555

PATIENT
  Age: 26 Year
  Sex: Female
  Weight: 61.22 kg

DRUGS (2)
  1. MIRENA [Suspect]
     Indication: CONTRACEPTION
     Dosage: 20 MCG/24HR, CONT
     Route: 015
     Dates: start: 20110124, end: 20130103
  2. ETHINYL ESTRADIOL W/NORGESTREL [Concomitant]
     Dosage: 1 EVERY DAY SKIP SUGAR PILL AND TAKE CONTINUOUSLY FOR 3 MONTHS

REACTIONS (9)
  - Uterine perforation [None]
  - Genital haemorrhage [None]
  - Pelvic pain [None]
  - Abdominal pain lower [None]
  - Uterine contractions abnormal [None]
  - Injury [None]
  - Pain [None]
  - Emotional distress [None]
  - Device difficult to use [None]
